FAERS Safety Report 14145479 (Version 1)
Quarter: 2017Q4

REPORT INFORMATION
  Report Type: Report from Study
  Country: GB (occurrence: GB)
  Receive Date: 20171031
  Receipt Date: 20171031
  Transmission Date: 20180321
  Serious: Yes (Hospitalization, Other)
  Sender: FDA-Public Use
  Company Number: GB-AMGEN-GBRSL2017161941

PATIENT
  Age: 67 Year
  Sex: Male

DRUGS (1)
  1. ARANESP [Suspect]
     Active Substance: DARBEPOETIN ALFA
     Indication: PRODUCT USED FOR UNKNOWN INDICATION
     Dosage: 40 MUG, UNK
     Route: 065

REACTIONS (6)
  - Prostate cancer [Unknown]
  - Complication associated with device [Unknown]
  - Cardiac failure [Unknown]
  - Bladder catheterisation [Unknown]
  - Infection [Unknown]
  - Artificial urinary sphincter implant [Unknown]

NARRATIVE: CASE EVENT DATE: 2002
